FAERS Safety Report 14391684 (Version 1)
Quarter: 2018Q1

REPORT INFORMATION
  Report Type: Spontaneous
  Country: US (occurrence: US)
  Receive Date: 20180112
  Receipt Date: 20180112
  Transmission Date: 20180509
  Serious: Yes (Other)
  Sender: FDA-Public Use
  Company Number: None

PATIENT
  Age: 6 Month
  Sex: Male
  Weight: 7.2 kg

DRUGS (3)
  1. BREATHING TREATMENTS [Concomitant]
  2. ALBUTEROL. [Concomitant]
     Active Substance: ALBUTEROL
  3. OSELTAVIMIR [Suspect]
     Active Substance: OSELTAMIVIR
     Indication: INFLUENZA
     Dosage: ?          QUANTITY:3.8 3.8ML;?
     Route: 048
     Dates: start: 20180109

REACTIONS (4)
  - Irritability [None]
  - Skin exfoliation [None]
  - Rash erythematous [None]
  - Diarrhoea [None]
